FAERS Safety Report 13877659 (Version 1)
Quarter: 2017Q3

REPORT INFORMATION
  Report Type: Spontaneous
  Country: DE (occurrence: DE)
  Receive Date: 20170817
  Receipt Date: 20170817
  Transmission Date: 20171127
  Serious: Yes (Other)
  Sender: FDA-Public Use
  Company Number: DE-MYLANLABS-2017M1050119

PATIENT

DRUGS (1)
  1. ACETYLCYSTEINE. [Suspect]
     Active Substance: ACETYLCYSTEINE
     Indication: ENCEPHALOPATHY
     Route: 065

REACTIONS (3)
  - Condition aggravated [Recovered/Resolved]
  - Product use in unapproved indication [Unknown]
  - Encephalopathy [Recovered/Resolved]
